FAERS Safety Report 15073137 (Version 2)
Quarter: 2018Q3

REPORT INFORMATION
  Report Type: Spontaneous
  Country: AT (occurrence: AT)
  Receive Date: 20180627
  Receipt Date: 20180711
  Transmission Date: 20181010
  Serious: Yes (Death, Hospitalization)
  Sender: FDA-Public Use
  Company Number: AT-ROCHE-2142400

PATIENT
  Age: 63 Year
  Sex: Male

DRUGS (1)
  1. ALECENSA [Suspect]
     Active Substance: ALECTINIB HYDROCHLORIDE
     Indication: METASTASES TO ABDOMINAL CAVITY
     Route: 065
     Dates: start: 20180605

REACTIONS (6)
  - Cardiopulmonary failure [Fatal]
  - Atrial fibrillation [Unknown]
  - Tachycardia [Unknown]
  - Off label use [Unknown]
  - Pleural effusion [Unknown]
  - Intentional product use issue [Unknown]

NARRATIVE: CASE EVENT DATE: 20180617
